FAERS Safety Report 4330502-8 (Version None)
Quarter: 2004Q1

REPORT INFORMATION
  Report Type: 
  Country: None (occurrence: None)
  Receive Date: 20040329
  Receipt Date: 20040311
  Transmission Date: 20041129
  Serious: Yes (Hospitalization)
  Sender: FDA-Public Use
  Company Number: CIP04000118

PATIENT
  Age: 77 Year
  Sex: Female

DRUGS (2)
  1. BENET(RISEDRONATE SODIUM) TABLET, 2.5 MG [Suspect]
     Indication: OSTEOPOROSIS
     Dosage: 2.5 MG DAILY, ORAL
     Route: 048
     Dates: start: 20020724, end: 20021210
  2. ALFAROL (ALFACALCIDOL) [Concomitant]

REACTIONS (6)
  - ASTHENIA [None]
  - CYTOMEGALOVIRUS INFECTION [None]
  - DYSGEUSIA [None]
  - HEPATITIS C [None]
  - HYPOAESTHESIA [None]
  - URINARY TRACT INFECTION [None]
